FAERS Safety Report 9499693 (Version 2)
Quarter: 2013Q3

REPORT INFORMATION
  Report Type: Spontaneous
  Country: IE (occurrence: IE)
  Receive Date: 20130905
  Receipt Date: 20130920
  Transmission Date: 20140515
  Serious: Yes (Other)
  Sender: FDA-Public Use
  Company Number: IE-009507513-1309IRL001268

PATIENT
  Age: 39 Year
  Sex: Female

DRUGS (7)
  1. SYCREST [Suspect]
     Indication: BIPOLAR DISORDER
     Dosage: 5 MG, BID
     Route: 060
     Dates: start: 20130830, end: 20130831
  2. SYCREST [Suspect]
     Dosage: 10 MG, BID
     Route: 060
     Dates: start: 20130901, end: 201309
  3. LITHIUM [Concomitant]
  4. PROZAC [Concomitant]
     Dosage: 60 MG, QD
  5. SEROQUEL [Concomitant]
     Dosage: UNK
     Dates: end: 20130829
  6. SEROQUEL [Concomitant]
     Dosage: 100 MG
     Dates: start: 20130830, end: 20130831
  7. LYRICA [Concomitant]
     Dosage: UNK

REACTIONS (4)
  - Joint swelling [Unknown]
  - Fear [Unknown]
  - Formication [Unknown]
  - Dysarthria [Unknown]
